FAERS Safety Report 23514759 (Version 2)
Quarter: 2024Q1

REPORT INFORMATION
  Report Type: Spontaneous
  Country: US (occurrence: US)
  Receive Date: 20240212
  Receipt Date: 20240229
  Transmission Date: 20240410
  Serious: Yes (Other)
  Sender: FDA-Public Use
  Company Number: US-REGENERON PHARMACEUTICALS, INC.-2024-016998

PATIENT
  Sex: Male

DRUGS (8)
  1. EYLEA [Suspect]
     Active Substance: AFLIBERCEPT
     Indication: Neovascular age-related macular degeneration
     Dosage: 2 MG EVERY 4-6 WEEKS INTO RIGHT EYE (STRENGTH: 2MG/0.05CC; FORMULATIUON: UNKNOWN)
     Dates: start: 2022
  2. EYLEA HD [Suspect]
     Active Substance: AFLIBERCEPT
     Indication: Neovascular age-related macular degeneration
     Dosage: 8 MG EVERY 4-6 WEEKS INTO RIGHT EYE (FORMULATION: HD VIAL)
     Dates: start: 20231020, end: 20231020
  3. EYLEA HD [Suspect]
     Active Substance: AFLIBERCEPT
     Dosage: 8 MG EVERY 4-6 WEEKS INTO RIGHT EYE (FORMULATION: HD VIAL)
     Dates: start: 20231201, end: 20231201
  4. EYLEA HD [Suspect]
     Active Substance: AFLIBERCEPT
     Dosage: 8 MG EVERY 4-6 WEEKS INTO RIGHT EYE (FORMULATION: HD VIAL)
     Dates: start: 20240112, end: 20240112
  5. LATANOPROST [Concomitant]
     Active Substance: LATANOPROST
     Indication: Product used for unknown indication
     Dosage: INTO LEFT EYE, QHS
  6. BETIMOL [TIMOLOL] [Concomitant]
     Indication: Product used for unknown indication
     Dosage: INTO LEFT EYE, QAM
  7. AMLODIPINE [Concomitant]
     Active Substance: AMLODIPINE BESYLATE
     Indication: Product used for unknown indication
     Dosage: 5 MG, QD
  8. CRESTOR [Concomitant]
     Active Substance: ROSUVASTATIN CALCIUM
     Indication: Product used for unknown indication
     Dosage: 5 MG, QD

REACTIONS (1)
  - Retinal haemorrhage [Unknown]
